FAERS Safety Report 9203412 (Version 1)
Quarter: 2013Q1

REPORT INFORMATION
  Report Type: Spontaneous
  Country: US (occurrence: None)
  Receive Date: 20120709
  Receipt Date: 20120709
  Transmission Date: 20140127
  Serious: No
  Sender: FDA-Public Use
  Company Number: 2012HGS-003709

PATIENT
  Age: 48 Year
  Sex: Female

DRUGS (5)
  1. BENLYSTA [Suspect]
     Dosage: 1 IN 28 D. INTRAVENOUS DRIP
     Route: 042
     Dates: start: 20120502
  2. HYDROXYCHOROQUINE(HYDROXYCHLOROQUINE) (DYDROXYCHOLOROQUINE) [Concomitant]
  3. ASPIRIN (ACETYLSALICCYLIC ACID) (ACETYLSALICYLIC) [Concomitant]
     Dosage: 81MG, 2 IN 1 D
  4. FLUXETINE (FLUOXETINE HYDROCHLORIDE) (FLUOXETINE HYDROCHLORIDE) [Concomitant]
  5. VITAMINE B6 (PYRIDOXINE HYUDROCHLORIDE) (PYRIDOXINE HYUDROCHLORIDE) [Concomitant]

REACTIONS (4)
  - Arthralgia [None]
  - Joint swelling [None]
  - Somnolence [None]
  - Migraine [None]
